FAERS Safety Report 8998931 (Version 1)
Quarter: 2013Q1

REPORT INFORMATION
  Report Type: Spontaneous
  Country: ES (occurrence: ES)
  Receive Date: 20130103
  Receipt Date: 20130103
  Transmission Date: 20140127
  Serious: Yes (Death, Hospitalization)
  Sender: FDA-Public Use
  Company Number: ES-ACCORD-015805

PATIENT
  Age: 45 Year
  Sex: Female

DRUGS (5)
  1. DACLIZUMAB [Concomitant]
  2. ASPIRIN [Concomitant]
  3. PREDNISONE [Suspect]
     Indication: HEART TRANSPLANT
  4. TACROLIMUS [Suspect]
     Indication: HEART TRANSPLANT
  5. MYCOPHENOLATE MOFETIL [Suspect]
     Indication: HEART TRANSPLANT

REACTIONS (4)
  - Multi-organ failure [Fatal]
  - Hyponatraemia [Unknown]
  - Toxoplasmosis [Fatal]
  - Off label use [Unknown]
